FAERS Safety Report 17430767 (Version 2)
Quarter: 2020Q2

REPORT INFORMATION
  Report Type: Spontaneous
  Country: US (occurrence: US)
  Receive Date: 20200218
  Receipt Date: 20200514
  Transmission Date: 20200713
  Serious: No
  Sender: FDA-Public Use
  Company Number: US-BIOCODEX SA-202000033

PATIENT
  Sex: Male
  Weight: 31.7 kg

DRUGS (7)
  1. DIACOMIT [Suspect]
     Active Substance: STIRIPENTOL
     Dosage: 250 MG TWICE DAILY
     Route: 048
  2. ONFI [Concomitant]
     Active Substance: CLOBAZAM
     Indication: SEVERE MYOCLONIC EPILEPSY OF INFANCY
     Route: 065
  3. FISH OIL [Concomitant]
     Active Substance: FISH OIL
     Indication: PRODUCT USED FOR UNKNOWN INDICATION
     Route: 065
  4. FISH OIL [Concomitant]
     Active Substance: FISH OIL
     Route: 065
  5. DIACOMIT [Suspect]
     Active Substance: STIRIPENTOL
     Indication: SEVERE MYOCLONIC EPILEPSY OF INFANCY
     Dosage: 250 MG, MIX 1 PACKET IN 10 ML OF WATER
     Route: 048
     Dates: start: 20191115
  6. VITAMIN D [Concomitant]
     Active Substance: VITAMIN D NOS
     Indication: PRODUCT USED FOR UNKNOWN INDICATION
     Route: 065
  7. FISH OIL [Concomitant]
     Active Substance: FISH OIL
     Route: 065

REACTIONS (4)
  - Fatigue [Unknown]
  - Irritability [Unknown]
  - Decreased appetite [Unknown]
  - Product dose omission [Unknown]
